FAERS Safety Report 23480937 (Version 4)
Quarter: 2025Q3

REPORT INFORMATION
  Report Type: Report from Study
  Country: US (occurrence: US)
  Receive Date: 20240205
  Receipt Date: 20250918
  Transmission Date: 20251020
  Serious: Yes (Other)
  Sender: ESTEVE
  Company Number: US-ORG100014127-2023000167

PATIENT
  Age: 67 Year
  Sex: Female

DRUGS (40)
  1. LYSODREN [Suspect]
     Active Substance: MITOTANE
     Indication: Adrenal gland cancer
     Dates: start: 20230125, end: 20230514
  2. LYSODREN [Suspect]
     Active Substance: MITOTANE
     Indication: Adrenal gland cancer
  3. LYSODREN [Suspect]
     Active Substance: MITOTANE
     Indication: Adrenocortical carcinoma
  4. LYSODREN [Suspect]
     Active Substance: MITOTANE
     Dates: start: 20230517, end: 20230526
  5. SYNTHROID [Concomitant]
     Active Substance: LEVOTHYROXINE SODIUM
  6. TART CHERRY ADVANCED [Concomitant]
  7. OMEGA 3 [Concomitant]
     Active Substance: CAPSAICIN
  8. POTASSIUM CHLORIDE [Concomitant]
     Active Substance: POTASSIUM CHLORIDE
  9. SELENIUM [Concomitant]
     Active Substance: SELENIUM
  10. LIPITOR [Concomitant]
     Active Substance: ATORVASTATIN CALCIUM
  11. HYDRALAZINE [Concomitant]
     Active Substance: HYDRALAZINE HYDROCHLORIDE
  12. VITAMIN D3 [Concomitant]
     Active Substance: CHOLECALCIFEROL
  13. VALTREX [Concomitant]
     Active Substance: VALACYCLOVIR HYDROCHLORIDE
  14. HERBALS\TURMERIC [Concomitant]
     Active Substance: HERBALS\TURMERIC
  15. Advanced Tart Cherry Extract [Concomitant]
  16. SYNTHROID [Concomitant]
     Active Substance: LEVOTHYROXINE SODIUM
  17. SODIUM CHLORIDE [Concomitant]
     Active Substance: SODIUM CHLORIDE
  18. Multivitamin adults [Concomitant]
  19. Metoprol suc [Concomitant]
  20. LOSARTAN POTASSIUM [Concomitant]
     Active Substance: LOSARTAN POTASSIUM
  21. LEVOTHYROXINE [Concomitant]
     Active Substance: LEVOTHYROXINE
  22. FLUDROCORTISONE [Concomitant]
     Active Substance: FLUDROCORTISONE
  23. Betameth dip [Concomitant]
  24. VITAMIN D3 [Concomitant]
     Active Substance: CHOLECALCIFEROL
  25. VALTREX [Concomitant]
     Active Substance: VALACYCLOVIR HYDROCHLORIDE
  26. PREDNISONE [Concomitant]
     Active Substance: PREDNISONE
  27. ONDANSETRON [Concomitant]
     Active Substance: ONDANSETRON
  28. OMEPRAZOLE [Concomitant]
     Active Substance: OMEPRAZOLE
  29. LEVOTHYROXINE [Concomitant]
     Active Substance: LEVOTHYROXINE
  30. GLUCOSAMINE [Concomitant]
     Active Substance: GLUCOSAMINE
  31. FLAX SEED [Concomitant]
     Active Substance: FLAX SEED
  32. EPIPEN [Concomitant]
     Active Substance: EPINEPHRINE
  33. COLLAGEN HYDROLYS [Concomitant]
  34. CELEXA [Concomitant]
     Active Substance: CITALOPRAM HYDROBROMIDE
  35. ASPIRIN [Concomitant]
     Active Substance: ASPIRIN
  36. AMLODIPINE [Concomitant]
     Active Substance: AMLODIPINE BESYLATE
  37. ALENDRONATE [Concomitant]
     Active Substance: ALENDRONATE SODIUM
  38. LYSODREN [Suspect]
     Active Substance: MITOTANE
  39. LYSODREN [Suspect]
     Active Substance: MITOTANE
  40. LYSODREN [Suspect]
     Active Substance: MITOTANE
     Dates: start: 20230529

REACTIONS (4)
  - Adrenal insufficiency [Unknown]
  - Product dose omission issue [Unknown]
  - Fatigue [Not Recovered/Not Resolved]
  - Rash [Recovering/Resolving]

NARRATIVE: CASE EVENT DATE: 20230101
